FAERS Safety Report 5140925-5 (Version None)
Quarter: 2006Q4

REPORT INFORMATION
  Report Type: 
  Country: None (occurrence: None)
  Receive Date: 20061026
  Receipt Date: 20061026
  Transmission Date: 20070319
  Serious: Yes (Hospitalization)
  Sender: FDA-Public Use
  Company Number: None

PATIENT
  Age: 80 Year
  Sex: Male

DRUGS (1)
  1. GLYBURIDE [Suspect]
     Indication: DIABETES MELLITUS
     Dosage: 5 MG BID
     Dates: start: 20060825, end: 20060912

REACTIONS (3)
  - BLOOD GLUCOSE DECREASED [None]
  - COMMUNICATION DISORDER [None]
  - FEELING ABNORMAL [None]
